FAERS Safety Report 7209278-2 (Version None)
Quarter: 2011Q1

REPORT INFORMATION
  Report Type: 
  Country: None (occurrence: None)
  Receive Date: 20110104
  Receipt Date: 20101228
  Transmission Date: 20110831
  Serious: Yes (Hospitalization)
  Sender: FDA-Public Use
  Company Number: B0680783A

PATIENT
  Sex: Female

DRUGS (6)
  1. CARBOPLATIN [Concomitant]
     Route: 042
     Dates: start: 20101005, end: 20101005
  2. METHYLPREDNISOLONE [Concomitant]
     Indication: PREMEDICATION
     Route: 042
     Dates: start: 20101005, end: 20101005
  3. ZOPHREN [Suspect]
     Indication: PREMEDICATION
     Dosage: 8MG SINGLE DOSE
     Route: 042
     Dates: start: 20101005, end: 20101005
  4. PACLITAXEL [Concomitant]
     Route: 042
     Dates: start: 20101005, end: 20101005
  5. GEMCITABINE [Concomitant]
     Route: 042
     Dates: start: 20101026, end: 20101026
  6. OXALIPLATIN [Concomitant]
     Route: 042
     Dates: start: 20101026, end: 20101026

REACTIONS (6)
  - ERYTHEMA [None]
  - BLOOD PRESSURE INCREASED [None]
  - SENSE OF OPPRESSION [None]
  - DYSPNOEA [None]
  - BACK PAIN [None]
  - PAINFUL RESPIRATION [None]
